FAERS Safety Report 5390550-6 (Version None)
Quarter: 2007Q3

REPORT INFORMATION
  Report Type: 
  Country: None (occurrence: None)
  Receive Date: 20070718
  Receipt Date: 20070706
  Transmission Date: 20080115
  Serious: Yes (Other)
  Sender: FDA-Public Use
  Company Number: BR-PFIZER INC-2007055574

PATIENT
  Age: 62 Year
  Sex: Male

DRUGS (8)
  1. CHAMPIX [Suspect]
     Indication: SMOKING CESSATION THERAPY
     Route: 048
  2. NIMESULIDE [Suspect]
  3. METFORMIN HCL [Concomitant]
     Route: 048
  4. CAPTOPRIL [Concomitant]
  5. ASPIRIN [Concomitant]
     Route: 048
  6. VIAGRA [Concomitant]
     Route: 048
  7. TESTOSTERONE [Concomitant]
  8. VITAMIN B-COMPLEX WITH MINERALS [Concomitant]

REACTIONS (6)
  - APATHY [None]
  - DECREASED APPETITE [None]
  - LIMB INJURY [None]
  - MALAISE [None]
  - NAUSEA [None]
  - OEDEMA PERIPHERAL [None]
